FAERS Safety Report 23382294 (Version 2)
Quarter: 2024Q1

REPORT INFORMATION
  Report Type: Spontaneous
  Country: BE (occurrence: BE)
  Receive Date: 20240109
  Receipt Date: 20240118
  Transmission Date: 20240409
  Serious: Yes (Hospitalization, Other)
  Sender: FDA-Public Use
  Company Number: BE-BAXTER-2024BAX010039

PATIENT
  Age: 64 Year
  Sex: Female
  Weight: 85.6 kg

DRUGS (27)
  1. CYCLOPHOSPHAMIDE [Suspect]
     Active Substance: CYCLOPHOSPHAMIDE
     Indication: Diffuse large B-cell lymphoma stage IV
     Dosage: 1455 MG, EVERY 3 WEEKS
     Route: 042
     Dates: start: 20230829, end: 20231220
  2. DOXORUBICIN [Suspect]
     Active Substance: DOXORUBICIN
     Indication: Diffuse large B-cell lymphoma stage IV
     Dosage: 97 MG, EVERY 3 WEEKS
     Route: 042
     Dates: start: 20230829, end: 20231220
  3. EPCORITAMAB [Suspect]
     Active Substance: EPCORITAMAB
     Indication: Diffuse large B-cell lymphoma stage IV
     Dosage: 48 MG C1 (STEP-UP), CYCLES 2 - 4   (21- DAY CYCLE, WEEKLY DOSE), C5 - 8 (21 - DAY CYCLE, EVERY 3WEEK
     Route: 058
     Dates: start: 20230829, end: 20231121
  4. VINCRISTINE [Suspect]
     Active Substance: VINCRISTINE
     Indication: Diffuse large B-cell lymphoma stage IV
     Dosage: 2 MG, EVERY 3 WEEKS
     Route: 042
     Dates: start: 20230829, end: 20231220
  5. RITUXIMAB [Suspect]
     Active Substance: RITUXIMAB
     Indication: Diffuse large B-cell lymphoma stage IV
     Dosage: 727.5 MG, EVERY 3 WEEKS
     Route: 042
     Dates: start: 20230829, end: 20231220
  6. PREDNISONE [Suspect]
     Active Substance: PREDNISONE
     Indication: Diffuse large B-cell lymphoma stage IV
     Dosage: 100 MG C1-6, D 1-5, EVERY 1 DAYS
     Route: 048
     Dates: start: 20230829, end: 20231224
  7. ACYCLOVIR [Concomitant]
     Active Substance: ACYCLOVIR
     Indication: Infection prophylaxis
     Dosage: 400 MG, 2/DAYS
     Route: 065
     Dates: start: 20230829
  8. ALLOPURINOL [Concomitant]
     Active Substance: ALLOPURINOL
     Indication: Prophylaxis
     Dosage: 300 MG, EVERY 1 DAYS
     Route: 065
     Dates: start: 20230829
  9. AMLODIPINE BESYLATE [Concomitant]
     Active Substance: AMLODIPINE BESYLATE
     Indication: Hypertension
     Dosage: 5 MG, EVERY 1 DAYS (START DATE: 2015)
     Route: 065
  10. ASPIRIN [Concomitant]
     Active Substance: ASPIRIN
     Indication: Thrombosis prophylaxis
     Dosage: 80 MG, EVERY 1 DAYS (START DATE: 2015)
     Route: 065
  11. ERYTHROPOIETIN [Concomitant]
     Active Substance: ERYTHROPOIETIN
     Indication: Anaemia
     Dosage: 40000 MG, EVERY 1 WEEKS
     Route: 065
     Dates: start: 20230926
  12. BISOPROLOL [Concomitant]
     Active Substance: BISOPROLOL\BISOPROLOL FUMARATE
     Indication: Hypertension
     Dosage: 5 MG, EVERY 1 DAYS (START DATE: 2015)
     Route: 065
  13. CALCIUM CARBONATE [Concomitant]
     Active Substance: CALCIUM CARBONATE
     Indication: Prophylaxis
     Dosage: 1000 MG, EVERY 1 DAYS
     Route: 065
     Dates: start: 20230829
  14. ENOXAPARIN SODIUM [Concomitant]
     Active Substance: ENOXAPARIN SODIUM
     Indication: Thrombosis prophylaxis
     Dosage: 40 MG, EVERY 1 DAYS
     Route: 065
     Dates: start: 20230829
  15. CHOLECALCIFEROL [Concomitant]
     Active Substance: CHOLECALCIFEROL
     Indication: Prophylaxis
     Dosage: 25000 IU, EVERY 1 WEEKS
     Route: 065
     Dates: start: 20230829
  16. DAFALGAN [Concomitant]
     Active Substance: ACETAMINOPHEN
     Indication: Premedication
     Dosage: 1000 MG, EVERY 1 WEEKS
     Route: 065
     Dates: start: 20230829
  17. DAFALGAN [Concomitant]
     Active Substance: ACETAMINOPHEN
     Indication: Pain prophylaxis
     Dosage: 1000 MG, AS NECESSARY
     Route: 065
     Dates: start: 20230919
  18. SULFAMETHOXAZOLE\TRIMETHOPRIM [Concomitant]
     Active Substance: SULFAMETHOXAZOLE\TRIMETHOPRIM
     Indication: Infection prophylaxis
     Dosage: 960 MG, 3/WEEKS
     Route: 065
     Dates: start: 20230829
  19. FOLIC ACID [Concomitant]
     Active Substance: FOLIC ACID
     Indication: Vitamin supplementation
     Dosage: 4 MG, 3 /WEEKS
     Route: 065
     Dates: start: 20230829
  20. MOVICOL [Concomitant]
     Active Substance: POLYETHYLENE GLYCOL 3350\POTASSIUM CHLORIDE\SODIUM BICARBONATE\SODIUM CHLORIDE
     Indication: Constipation prophylaxis
     Dosage: 1 SACHET, AS NECESSARY
     Route: 065
     Dates: start: 20230829
  21. BEMPEDOIC ACID\EZETIMIBE [Concomitant]
     Active Substance: BEMPEDOIC ACID\EZETIMIBE
     Indication: Hypercholesterolaemia
     Dosage: 190 MG, EVERY 1 DAYS (START DATE: 2019)
     Route: 065
  22. PANTOPRAZOLE [Concomitant]
     Active Substance: PANTOPRAZOLE
     Indication: Gastrointestinal disorder prophylaxis
     Dosage: 20 MG, EVERY 1 DAYS (START DATE: 2023)
     Route: 065
  23. PRIMPERAN [Concomitant]
     Active Substance: METOCLOPRAMIDE HYDROCHLORIDE
     Indication: Prophylaxis of nausea and vomiting
     Dosage: 10 MG, AS NECESSARY
     Route: 065
     Dates: start: 20230829
  24. XANAX [Concomitant]
     Active Substance: ALPRAZOLAM
     Indication: Psychiatric disorder prophylaxis
     Dosage: 0.25 MG, EVERY 1 DAYS
     Route: 065
     Dates: start: 20230829
  25. REMERGON [Concomitant]
     Active Substance: MIRTAZAPINE
     Indication: Anxiety
     Dosage: 15 MG EOD
     Route: 065
     Dates: start: 20231010
  26. REMERGON [Concomitant]
     Active Substance: MIRTAZAPINE
     Indication: Depression
     Dosage: 15 MG, EVERY 1 DAYS
     Route: 065
     Dates: start: 20230703
  27. LEVOCETIRIZINE DIHYDROCHLORIDE [Concomitant]
     Active Substance: LEVOCETIRIZINE DIHYDROCHLORIDE
     Indication: Premedication
     Dosage: 5 MG, EVERY 1 WEEKS
     Route: 065
     Dates: start: 20230829

REACTIONS (13)
  - COVID-19 pneumonia [Not Recovered/Not Resolved]
  - Syncope [Unknown]
  - Fatigue [Unknown]
  - Condition aggravated [Unknown]
  - Respiratory disorder [Unknown]
  - Hypoxia [Unknown]
  - Pyrexia [Unknown]
  - Pyrexia [Recovered/Resolved]
  - Diarrhoea [Unknown]
  - Neutropenia [Unknown]
  - Sinusitis [Unknown]
  - Escherichia infection [Unknown]
  - C-reactive protein increased [Unknown]

NARRATIVE: CASE EVENT DATE: 20231210
